FAERS Safety Report 20595331 (Version 1)
Quarter: 2022Q1

REPORT INFORMATION
  Report Type: Spontaneous
  Country: US (occurrence: None)
  Receive Date: 20220314
  Receipt Date: 20220314
  Transmission Date: 20220423
  Serious: No
  Sender: FDA-Public Use
  Company Number: None

PATIENT
  Age: 86 Year
  Sex: Female
  Weight: 74.25 kg

DRUGS (1)
  1. FUNGI NAIL ANTI-FUNGAL PEN [Suspect]
     Active Substance: TOLNAFTATE
     Dosage: OTHER FREQUENCY : N/A;?

REACTIONS (1)
  - Product advertising issue [None]

NARRATIVE: CASE EVENT DATE: 20220314
